FAERS Safety Report 18619979 (Version 1)
Quarter: 2020Q4

REPORT INFORMATION
  Report Type: Spontaneous
  Country: VN (occurrence: VN)
  Receive Date: 20201215
  Receipt Date: 20201215
  Transmission Date: 20210114
  Serious: Yes (Death)
  Sender: FDA-Public Use
  Company Number: NVSC2020VN332834

PATIENT

DRUGS (9)
  1. METHOTREXATE. [Suspect]
     Active Substance: METHOTREXATE
     Dosage: 100 MG/M2 SKIN, CYCLIC, 3RD CYCLE
     Route: 065
     Dates: start: 2015
  2. PREDNISOLONE. [Suspect]
     Active Substance: PREDNISOLONE
     Indication: T-CELL TYPE ACUTE LEUKAEMIA
     Dosage: UNK, 5 CYCLES
     Route: 065
     Dates: start: 2008, end: 2015
  3. 6-MP [Suspect]
     Active Substance: MERCAPTOPURINE
     Indication: T-CELL TYPE ACUTE LEUKAEMIA
     Dosage: UNK, 5 CYCLES
     Route: 065
     Dates: start: 2008, end: 2015
  4. CYCLOPHOSPHAMIDE. [Suspect]
     Active Substance: CYCLOPHOSPHAMIDE
     Indication: T-CELL TYPE ACUTE LEUKAEMIA
     Dosage: UNK, 5 CYCLES
     Route: 065
     Dates: start: 2008, end: 2015
  5. L-ASPARAGINASE [Suspect]
     Active Substance: ASPARAGINASE
     Indication: T-CELL TYPE ACUTE LEUKAEMIA
     Dosage: UNK, 5 CYCLES
     Route: 065
     Dates: start: 2008, end: 2015
  6. VINCRISTINE [Suspect]
     Active Substance: VINCRISTINE
     Indication: T-CELL TYPE ACUTE LEUKAEMIA
     Dosage: UNK, 5 CYCLES
     Route: 065
     Dates: start: 2008, end: 2015
  7. ADRIAMYCIN [Suspect]
     Active Substance: DOXORUBICIN HYDROCHLORIDE
     Indication: T-CELL TYPE ACUTE LEUKAEMIA
     Dosage: UNK, 5 CYCLES
     Route: 065
     Dates: start: 2008, end: 2015
  8. CYTARABINE. [Suspect]
     Active Substance: CYTARABINE
     Indication: T-CELL TYPE ACUTE LEUKAEMIA
     Dosage: UNK, (5CYCLES)
     Route: 065
     Dates: start: 2008, end: 2015
  9. METHOTREXATE. [Suspect]
     Active Substance: METHOTREXATE
     Indication: T-CELL TYPE ACUTE LEUKAEMIA
     Dosage: 5 G/M2 SKIN/CYCLE, 5 CYCLES
     Route: 065
     Dates: start: 2008, end: 2015

REACTIONS (1)
  - Sepsis [Fatal]
